FAERS Safety Report 8307970-X (Version None)
Quarter: 2012Q2

REPORT INFORMATION
  Report Type: 
  Country: None (occurrence: None)
  Receive Date: 20120424
  Receipt Date: 20120417
  Transmission Date: 20120825
  Serious: Yes (Other)
  Sender: FDA-Public Use
  Company Number: US-GLAXOSMITHKLINE-A0973941A

PATIENT
  Age: 65 Year
  Sex: Female

DRUGS (3)
  1. TYKERB [Suspect]
     Indication: BREAST CANCER
     Dosage: 5TAB PER DAY
     Route: 048
     Dates: start: 20111001, end: 20120405
  2. NO CONCURRENT MEDICATION [Concomitant]
  3. XELODA [Suspect]
     Dosage: 4TAB TWICE PER DAY
     Dates: start: 20111101, end: 20120405

REACTIONS (1)
  - NEOPLASM MALIGNANT [None]
